FAERS Safety Report 17545148 (Version 1)
Quarter: 2020Q1

REPORT INFORMATION
  Report Type: Spontaneous
  Country: US (occurrence: US)
  Receive Date: 20200313
  Receipt Date: 20200313
  Transmission Date: 20200409
  Serious: Yes (Other)
  Sender: FDA-Public Use
  Company Number: None

PATIENT
  Age: 7 Year
  Sex: Female
  Weight: 21.15 kg

DRUGS (2)
  1. MULTIVITAMIN WITH FLOURIDE 1MG TABS [Concomitant]
  2. MIRALAX [Suspect]
     Active Substance: POLYETHYLENE GLYCOL 3350
     Indication: CONSTIPATION
     Dates: start: 20190201, end: 20200204

REACTIONS (3)
  - Anger [None]
  - Anxiety [None]
  - Behaviour disorder [None]

NARRATIVE: CASE EVENT DATE: 20200205
